FAERS Safety Report 22248674 (Version 2)
Quarter: 2023Q2

REPORT INFORMATION
  Report Type: Report from Study
  Country: US (occurrence: US)
  Receive Date: 20230425
  Receipt Date: 20230509
  Transmission Date: 20230721
  Serious: Yes (Hospitalization, Other)
  Sender: FDA-Public Use
  Company Number: US-002147023-NVSC2023US090759

PATIENT
  Sex: Male
  Weight: 115.8 kg

DRUGS (11)
  1. ENTRESTO [Suspect]
     Active Substance: SACUBITRIL\VALSARTAN
     Indication: Chronic left ventricular failure
     Dosage: 1 DOSAGE FORM, BID (24 /26 MG) (1 TABLET BY MOUTH IN THE MORNING AND 1 TABLET BEFORE BEDTIME)
     Route: 048
     Dates: start: 20230302, end: 20230308
  2. ENTRESTO [Suspect]
     Active Substance: SACUBITRIL\VALSARTAN
     Indication: Cardiac failure congestive
     Dosage: 1 DOSAGE FORM (1 TABLET BY MOUTH IN THE MORNING AND 1 TABLET BEFORE BEDTIME)
     Route: 048
     Dates: start: 20230308
  3. ENTRESTO [Suspect]
     Active Substance: SACUBITRIL\VALSARTAN
     Indication: Dilated cardiomyopathy
  4. ENTRESTO [Suspect]
     Active Substance: SACUBITRIL\VALSARTAN
     Indication: Cardiomyopathy
  5. LASIX [Concomitant]
     Active Substance: FUROSEMIDE
     Indication: Product used for unknown indication
     Dosage: 40 MG, QD (IN THE MORNING)
     Route: 048
     Dates: start: 20230302, end: 20230306
  6. LASIX [Concomitant]
     Active Substance: FUROSEMIDE
     Dosage: 1 DOSAGE FORM, QD (IN THE MORNING)
     Route: 048
     Dates: start: 20230308
  7. TOPROL XL [Concomitant]
     Active Substance: METOPROLOL SUCCINATE
     Indication: Product used for unknown indication
     Dosage: 25 MG, QD
     Route: 048
     Dates: start: 20230302, end: 20230308
  8. TOPROL XL [Concomitant]
     Active Substance: METOPROLOL SUCCINATE
     Dosage: 1 DOSAGE FORM, QD (IN THE MORNING)
     Route: 048
     Dates: start: 20230308
  9. PROAIR HFA [Concomitant]
     Active Substance: ALBUTEROL SULFATE
     Indication: Wheezing
     Dosage: UNK, Q4H (1-2 PUFFS)
     Route: 065
     Dates: start: 20220929
  10. PROAIR HFA [Concomitant]
     Active Substance: ALBUTEROL SULFATE
     Indication: Dyspnoea
  11. PROAIR HFA [Concomitant]
     Active Substance: ALBUTEROL SULFATE
     Indication: Cough

REACTIONS (12)
  - Cardiac failure [Unknown]
  - Haemoptysis [Unknown]
  - Pulmonary congestion [Recovered/Resolved]
  - Productive cough [Recovered/Resolved]
  - Dyspnoea [Not Recovered/Not Resolved]
  - Dyspnoea paroxysmal nocturnal [Unknown]
  - Blood pressure increased [Unknown]
  - Orthopnoea [Unknown]
  - Acute kidney injury [Recovered/Resolved]
  - Pulmonary mass [Unknown]
  - Blood bilirubin increased [Recovered/Resolved]
  - Insomnia [Unknown]
